FAERS Safety Report 13586884 (Version 1)
Quarter: 2017Q2

REPORT INFORMATION
  Report Type: Spontaneous
  Country: US (occurrence: US)
  Receive Date: 20170526
  Receipt Date: 20170526
  Transmission Date: 20170830
  Serious: No
  Sender: FDA-Public Use
  Company Number: US-ROCHE-1382026

PATIENT
  Sex: Male

DRUGS (1)
  1. VALCYTE [Suspect]
     Active Substance: VALGANCICLOVIR HYDROCHLORIDE
     Indication: LUNG TRANSPLANT
     Route: 048

REACTIONS (6)
  - Gastrooesophageal reflux disease [Unknown]
  - Oesophagogastric fundoplasty [Unknown]
  - Cytomegalovirus infection [Unknown]
  - Immune system disorder [Unknown]
  - Diverticulitis [Unknown]
  - Lung transplant rejection [Unknown]

NARRATIVE: CASE EVENT DATE: 2013
